FAERS Safety Report 8747277 (Version 2)
Quarter: 2012Q4

REPORT INFORMATION
  Report Type: 
  Country: US (occurrence: US)
  Receive Date: 20120827
  Receipt Date: 20121002
  Transmission Date: 20130627
  Serious: Yes (Death)
  Sender: FDA-Public Use
  Company Number: US-ASTRAZENECA-2012SE61187

PATIENT
  Sex: Male

DRUGS (2)
  1. SYMBICORT [Suspect]
     Dosage: 160/4.5 UNKNOWN
     Route: 055
  2. MULTIPLE MEDICATIONS [Concomitant]

REACTIONS (2)
  - Death [Fatal]
  - Cardiac disorder [Unknown]
